FAERS Safety Report 10552739 (Version 2)
Quarter: 2015Q1

REPORT INFORMATION
  Report Type: Spontaneous
  Country: US (occurrence: US)
  Receive Date: 20141029
  Receipt Date: 20150330
  Transmission Date: 20150720
  Serious: No
  Sender: FDA-Public Use
  Company Number: US-MYLANLABS-2014S1003205

PATIENT
  Age: 33 Year
  Sex: Female
  Weight: 49.9 kg

DRUGS (9)
  1. FENTANYL TRANSDERMAL SYSTEM [Suspect]
     Active Substance: FENTANYL
     Indication: PAIN
     Dosage: 25 ?G,QH
     Route: 062
     Dates: start: 20140127
  2. DIAZEPAM TABLETS USP [Suspect]
     Active Substance: DIAZEPAM
     Indication: ANXIETY
     Dosage: 7.5 MG,PRN
     Route: 048
     Dates: start: 199911
  3. POTASSIUM [Concomitant]
     Active Substance: POTASSIUM
     Dosage: UNK
  4. GABAPENTIN. [Concomitant]
     Active Substance: GABAPENTIN
     Dosage: UNK
  5. TRILIPIX [Concomitant]
     Active Substance: FENOFIBRIC ACID
     Dosage: UNK
  6. CYMBALTA [Concomitant]
     Active Substance: DULOXETINE HYDROCHLORIDE
     Dosage: UNK
  7. VITAMIN B12 [Concomitant]
     Active Substance: CYANOCOBALAMIN
     Dosage: UNK
  8. CRESTOR [Concomitant]
     Active Substance: ROSUVASTATIN CALCIUM
     Dosage: UNK
  9. VITAMIN D [Concomitant]
     Active Substance: CHOLECALCIFEROL
     Dosage: UNK

REACTIONS (1)
  - Drug withdrawal syndrome [Not Recovered/Not Resolved]

NARRATIVE: CASE EVENT DATE: 201401
